FAERS Safety Report 4472050-0 (Version None)
Quarter: 2004Q4

REPORT INFORMATION
  Report Type: 
  Country: None (occurrence: None)
  Receive Date: 20041012
  Receipt Date: 20040927
  Transmission Date: 20050328
  Serious: Yes (Death)
  Sender: FDA-Public Use
  Company Number: 2004072342

PATIENT
  Age: 47 Year

DRUGS (2)
  1. DIPHENHYDRAMINE, PARACETAMOL (DIPHENHYDRAMINE, PARACETAMOL) [Suspect]
     Indication: COMPLETED SUICIDE
     Dosage: ORAL
     Route: 048
  2. TRICYCLIC ANTIDEPRESSANTS (TRICYCLIC ANTIDEPRESSANTS) [Suspect]
     Indication: COMPLETED SUICIDE
     Dosage: ORAL
     Route: 048

REACTIONS (2)
  - COMPLETED SUICIDE [None]
  - MULTIPLE DRUG OVERDOSE INTENTIONAL [None]
